FAERS Safety Report 9869026 (Version 24)
Quarter: 2021Q4

REPORT INFORMATION
  Report Type: Other
  Country: CA (occurrence: None)
  Receive Date: 20140205
  Receipt Date: 20211228
  Transmission Date: 20220304
  Serious: Yes (Other)
  Sender: FDA-Public Use
  Company Number: CA-ROCHE-1291435

PATIENT
  Age: 75 Year
  Sex: Female
  Weight: 44 kg

DRUGS (25)
  1. ACTEMRA [Suspect]
     Active Substance: TOCILIZUMAB
     Indication: Giant cell arteritis
     Route: 042
     Dates: start: 20131008
  2. ACTEMRA [Suspect]
     Active Substance: TOCILIZUMAB
     Route: 042
     Dates: start: 20140325
  3. ACTEMRA [Suspect]
     Active Substance: TOCILIZUMAB
     Route: 042
     Dates: start: 20140617, end: 20161130
  4. ACTEMRA [Suspect]
     Active Substance: TOCILIZUMAB
     Indication: Vasculitis
     Dosage: 0.9 ML ACTPEN
     Route: 058
     Dates: start: 20161229, end: 202005
  5. ACTEMRA [Suspect]
     Active Substance: TOCILIZUMAB
     Dosage: 0.9 ML PRE-FILLED
     Route: 058
     Dates: start: 202005, end: 202008
  6. ACTEMRA [Suspect]
     Active Substance: TOCILIZUMAB
     Route: 058
     Dates: start: 202008, end: 202011
  7. ACTEMRA [Suspect]
     Active Substance: TOCILIZUMAB
     Route: 058
     Dates: start: 202011
  8. ACTEMRA [Suspect]
     Active Substance: TOCILIZUMAB
     Route: 058
     Dates: start: 202108
  9. PREDNISONE [Concomitant]
     Active Substance: PREDNISONE
  10. TYLENOL WITH CODEINE [Concomitant]
     Active Substance: ACETAMINOPHEN\CODEINE PHOSPHATE
  11. TYLENOL [Concomitant]
     Active Substance: ACETAMINOPHEN
  12. PROLIA [Concomitant]
     Active Substance: DENOSUMAB
  13. ASPIRIN [Concomitant]
     Active Substance: ASPIRIN
  14. VITAMIN C [Concomitant]
     Active Substance: ASCORBIC ACID
  15. CRANBERRY [Concomitant]
     Active Substance: CRANBERRY
  16. ASPIRIN [Concomitant]
     Active Substance: ASPIRIN
     Indication: Product used for unknown indication
  17. CALCIUM [Concomitant]
     Active Substance: CALCIUM
     Indication: Product used for unknown indication
  18. GABAPENTIN [Concomitant]
     Active Substance: GABAPENTIN
     Indication: Product used for unknown indication
  19. MAGNESIUM [Concomitant]
     Active Substance: MAGNESIUM
     Indication: Product used for unknown indication
  20. PROLIA [Concomitant]
     Active Substance: DENOSUMAB
     Indication: Product used for unknown indication
  21. ZOPICLONE [Concomitant]
     Active Substance: ZOPICLONE
     Indication: Product used for unknown indication
  22. RAMIPRIL [Concomitant]
     Active Substance: RAMIPRIL
  23. METOPROLOL [Concomitant]
     Active Substance: METOPROLOL
  24. CRESTOR [Concomitant]
     Active Substance: ROSUVASTATIN CALCIUM
     Route: 048
  25. BRILINTA [Concomitant]
     Active Substance: TICAGRELOR

REACTIONS (20)
  - Chest discomfort [Not Recovered/Not Resolved]
  - Irritable bowel syndrome [Recovering/Resolving]
  - Nausea [Recovered/Resolved]
  - Oropharyngeal pain [Recovered/Resolved]
  - Chest pain [Recovered/Resolved]
  - Fatigue [Not Recovered/Not Resolved]
  - Abdominal distension [Unknown]
  - Productive cough [Not Recovered/Not Resolved]
  - Headache [Recovering/Resolving]
  - Neutrophil count decreased [Unknown]
  - Off label use [Unknown]
  - Pain [Not Recovered/Not Resolved]
  - Pain in jaw [Recovering/Resolving]
  - Chest discomfort [Recovered/Resolved]
  - Weight increased [Not Recovered/Not Resolved]
  - Weight decreased [Unknown]
  - Infusion related reaction [Recovered/Resolved]
  - Blood pressure diastolic increased [Unknown]
  - Dental restoration failure [Unknown]
  - Asthenia [Unknown]

NARRATIVE: CASE EVENT DATE: 20131009
